FAERS Safety Report 7876681 (Version 3)
Quarter: 2013Q4

REPORT INFORMATION
  Report Type: Spontaneous
  Country: US (occurrence: US)
  Receive Date: 20110329
  Receipt Date: 20131218
  Transmission Date: 20140711
  Serious: Yes (Hospitalization, Other)
  Sender: FDA-Public Use
  Company Number: US-BAYER-2011-025519

PATIENT
  Age: 38 Year
  Sex: Female
  Weight: 136 kg

DRUGS (8)
  1. YASMIN [Suspect]
     Indication: PREMENSTRUAL DYSPHORIC DISORDER
     Dosage: UNK
  2. ZESTRIL [Concomitant]
     Dosage: 10 MG, UNK
  3. HYDROCHLOROTHIAZIDE [Concomitant]
  4. SERAFIN [Concomitant]
  5. BENICAR HCT [Concomitant]
     Dosage: UNK
     Dates: start: 2006
  6. FLONASE [Concomitant]
  7. DARVOCET-N [Concomitant]
  8. SARAFEM [Concomitant]

REACTIONS (14)
  - Cholecystitis chronic [Unknown]
  - Cholecystitis chronic [Unknown]
  - Biliary dyskinesia [None]
  - Central nervous system lesion [Unknown]
  - Acute disseminated encephalomyelitis [None]
  - Depression [Unknown]
  - Attention deficit/hyperactivity disorder [Unknown]
  - Anxiety [Unknown]
  - Migraine [Unknown]
  - Abdominal pain upper [Unknown]
  - Vomiting [Unknown]
  - Memory impairment [Unknown]
  - Confusional state [Unknown]
  - Off label use [None]
